FAERS Safety Report 25510960 (Version 1)
Quarter: 2025Q3

REPORT INFORMATION
  Report Type: Spontaneous
  Country: US (occurrence: US)
  Receive Date: 20250703
  Receipt Date: 20250703
  Transmission Date: 20251021
  Serious: No
  Sender: RADIUS PHARM
  Company Number: US-RADIUS HEALTH INC.-2024US006554

PATIENT
  Age: 77 Year
  Sex: Female

DRUGS (2)
  1. TYMLOS [Suspect]
     Active Substance: ABALOPARATIDE
     Indication: Product used for unknown indication
     Route: 058
     Dates: start: 202408
  2. TYMLOS [Suspect]
     Active Substance: ABALOPARATIDE
     Route: 058

REACTIONS (4)
  - Rash [Unknown]
  - Intentional product misuse [Unknown]
  - Injection site rash [Recovered/Resolved]
  - Dry mouth [Unknown]

NARRATIVE: CASE EVENT DATE: 20240801
